FAERS Safety Report 5625095-9 (Version None)
Quarter: 2008Q1

REPORT INFORMATION
  Report Type: 
  Country: None (occurrence: None)
  Receive Date: 20080213
  Receipt Date: 20080117
  Transmission Date: 20080703
  Serious: No
  Sender: FDA-Public Use
  Company Number: US-BOEHRINGER INGELHEIM GMBH, GERMANY-2008-BP-00853BP

PATIENT
  Sex: Female

DRUGS (18)
  1. CATAPRES-TTS-1 [Suspect]
     Indication: HYPERTENSION
     Route: 061
     Dates: start: 20071217
  2. DARVOCET [Concomitant]
     Indication: BACK PAIN
  3. COREG [Concomitant]
  4. PRAVASTIN [Concomitant]
     Indication: BLOOD CHOLESTEROL INCREASED
  5. LISINOPRIL [Concomitant]
  6. CARBMAZEPINE [Concomitant]
     Indication: CONVULSION
  7. FOSAMAX [Concomitant]
  8. DETROL LA [Concomitant]
  9. ARTHROTEC [Concomitant]
  10. ALPROZORAM [Concomitant]
  11. PROPOXY- N APAD [Concomitant]
  12. FERROUS SULFATE TAB [Concomitant]
  13. CALCIUM GLUCONATE [Concomitant]
  14. VITAMIN C AND E [Concomitant]
  15. SUPER B COMPLEX [Concomitant]
  16. HISTAMINE PHOSPHATE [Concomitant]
  17. ASPIRIN [Concomitant]
  18. PRAVASTATIN [Concomitant]

REACTIONS (5)
  - APPLICATION SITE ERYTHEMA [None]
  - APPLICATION SITE RASH [None]
  - BLOOD PRESSURE INADEQUATELY CONTROLLED [None]
  - BLOOD PRESSURE INCREASED [None]
  - JOINT SWELLING [None]
